FAERS Safety Report 9424566 (Version 1)
Quarter: 2013Q3

REPORT INFORMATION
  Report Type: Spontaneous
  Country: US (occurrence: None)
  Receive Date: 20130726
  Receipt Date: 20130726
  Transmission Date: 20140515
  Serious: No
  Sender: FDA-Public Use
  Company Number: None

PATIENT
  Age: 51 Year
  Sex: Male
  Weight: 88.6 kg

DRUGS (1)
  1. BRIMONIDINE [Suspect]
     Indication: GLAUCOMA
     Dosage: 1 DROPS BID EYE
     Route: 047
     Dates: start: 20130627, end: 20130703

REACTIONS (2)
  - Conjunctivitis [None]
  - Skin irritation [None]
